FAERS Safety Report 15760486 (Version 1)
Quarter: 2018Q4

REPORT INFORMATION
  Report Type: Report from Study
  Country: IL (occurrence: IL)
  Receive Date: 20181226
  Receipt Date: 20181226
  Transmission Date: 20190205
  Serious: No
  Sender: FDA-Public Use
  Company Number: IL-ROCHE-2165989

PATIENT
  Sex: Female

DRUGS (9)
  1. FAMPYRA [Concomitant]
     Active Substance: DALFAMPRIDINE
  2. BETISTINE [Concomitant]
  3. BRINTELLIX [Concomitant]
     Active Substance: VORTIOXETINE HYDROBROMIDE
  4. BACLOSAL [Concomitant]
     Active Substance: BACLOFEN
  5. SOLU-MEDROL [Concomitant]
     Active Substance: METHYLPREDNISOLONE SODIUM SUCCINATE
     Route: 065
  6. EUTHYROX [Concomitant]
     Active Substance: LEVOTHYROXINE SODIUM
  7. BETMIGA [Concomitant]
     Active Substance: MIRABEGRON
  8. OCREVUS [Suspect]
     Active Substance: OCRELIZUMAB
     Indication: MULTIPLE SCLEROSIS
     Route: 065
     Dates: start: 20180718
  9. DEPO-PROVERA [Concomitant]
     Active Substance: MEDROXYPROGESTERONE ACETATE

REACTIONS (12)
  - Incorrect drug administration rate [Unknown]
  - Asthenia [Not Recovered/Not Resolved]
  - Pruritus [Recovered/Resolved]
  - Palpitations [Recovered/Resolved]
  - Urinary tract infection [Recovering/Resolving]
  - Intentional product use issue [Unknown]
  - Blood iron decreased [Not Recovered/Not Resolved]
  - Extra dose administered [Unknown]
  - Dysphonia [Recovered/Resolved]
  - Off label use [Unknown]
  - Haemoglobin decreased [Not Recovered/Not Resolved]
  - Alopecia [Not Recovered/Not Resolved]
